FAERS Safety Report 4591576-2 (Version None)
Quarter: 2005Q1

REPORT INFORMATION
  Report Type: 
  Country: None (occurrence: None)
  Receive Date: 20050223
  Receipt Date: 20050214
  Transmission Date: 20050727
  Serious: Yes (Hospitalization)
  Sender: FDA-Public Use
  Company Number: GXKR2005BD00597

PATIENT
  Age: 5 Year
  Sex: Female
  Weight: 27 kg

DRUGS (5)
  1. RIFAMPICIN [Suspect]
     Indication: TUBERCULOSIS GASTROINTESTINAL
  2. ISONIAZID [Suspect]
     Indication: TUBERCULOSIS GASTROINTESTINAL
  3. PYRAZINAMIDE [Suspect]
     Indication: TUBERCULOSIS GASTROINTESTINAL
  4. ETHAMBUTOL HCL [Suspect]
     Indication: TUBERCULOSIS GASTROINTESTINAL
  5. PREDNISONE [Concomitant]

REACTIONS (3)
  - FOCAL NODULAR HYPERPLASIA [None]
  - GASTRIC NEOPLASM [None]
  - MEDICATION ERROR [None]
